FAERS Safety Report 24066964 (Version 1)
Quarter: 2024Q3

REPORT INFORMATION
  Report Type: Spontaneous
  Country: NL (occurrence: NL)
  Receive Date: 20240709
  Receipt Date: 20240709
  Transmission Date: 20241016
  Serious: Yes (Other)
  Sender: BRISTOL MYERS SQUIBB
  Company Number: NL-BRISTOL-MYERS SQUIBB COMPANY-2024-105753

PATIENT
  Age: 51 Year
  Sex: Female

DRUGS (1)
  1. NIVOLUMAB [Suspect]
     Active Substance: NIVOLUMAB
     Indication: Malignant melanoma stage III
     Dosage: DOSE: UNAVAILABLE; FREQ: UNAVAILABLE

REACTIONS (3)
  - Oligoarthritis [Recovering/Resolving]
  - Paraneoplastic arthritis [Recovering/Resolving]
  - Rheumatoid arthritis [Recovering/Resolving]
